FAERS Safety Report 4753589-7 (Version None)
Quarter: 2005Q3

REPORT INFORMATION
  Report Type: 
  Country: None (occurrence: None)
  Receive Date: 20050824
  Receipt Date: 20050812
  Transmission Date: 20060218
  Serious: Yes (Hospitalization)
  Sender: FDA-Public Use
  Company Number: 2005062623

PATIENT
  Age: 10 Year
  Sex: Female

DRUGS (1)
  1. GENOTROPIN [Suspect]
     Indication: PRADER-WILLI SYNDROME
     Dosage: (16 I.U.), SUBCUTANEOUS
     Route: 058

REACTIONS (3)
  - ANGIOPATHY [None]
  - DYSPNOEA [None]
  - PULMONARY OEDEMA [None]
